FAERS Safety Report 8821356 (Version 2)
Quarter: 2012Q4

REPORT INFORMATION
  Report Type: 
  Country: DE (occurrence: DE)
  Receive Date: 20121002
  Receipt Date: 20121128
  Transmission Date: 20130627
  Serious: Yes (Other)
  Sender: FDA-Public Use
  Company Number: DE-ELI_LILLY_AND_COMPANY-DE201209006515

PATIENT
  Age: 59 Year
  Sex: Female

DRUGS (8)
  1. FORSTEO [Suspect]
     Indication: OSTEOPOROSIS POSTMENOPAUSAL
     Dosage: 20 ug, qd
     Route: 058
     Dates: start: 20120829, end: 20120921
  2. MARCUMAR [Concomitant]
     Dosage: UNK, unknown
     Route: 065
  3. CALCIUM [Concomitant]
  4. DEKRISTOL [Concomitant]
  5. COAPROVEL [Concomitant]
  6. METOHEXAL [Concomitant]
     Dosage: UNK, unknown
     Route: 065
  7. EUTHYROX [Concomitant]
     Dosage: UNK, unknown
     Route: 065
  8. RIFUN [Concomitant]
     Dosage: UNK, unknown
     Route: 065

REACTIONS (6)
  - Arrhythmia [Not Recovered/Not Resolved]
  - Spinal fracture [Recovered/Resolved]
  - Dizziness [Not Recovered/Not Resolved]
  - Headache [Recovering/Resolving]
  - Pain in extremity [Recovering/Resolving]
  - Nausea [Recovering/Resolving]
